FAERS Safety Report 18899638 (Version 1)
Quarter: 2021Q1

REPORT INFORMATION
  Report Type: Spontaneous
  Country: FR (occurrence: FR)
  Receive Date: 20210216
  Receipt Date: 20210216
  Transmission Date: 20210420
  Serious: Yes (Other)
  Sender: FDA-Public Use
  Company Number: NVSC2021FR031032

PATIENT
  Age: 32 Year
  Sex: Male
  Weight: 93 kg

DRUGS (2)
  1. TAFINLAR [Suspect]
     Active Substance: DABRAFENIB MESYLATE
     Indication: NAEVOID MELANOMA
     Dosage: 300 MG, QD
     Route: 048
     Dates: start: 20200717
  2. MEKINIST [Suspect]
     Active Substance: TRAMETINIB DIMETHYL SULFOXIDE
     Indication: NAEVOID MELANOMA
     Dosage: 2 MG, QD
     Route: 048
     Dates: start: 20200720

REACTIONS (1)
  - Cutaneous lupus erythematosus [Not Recovered/Not Resolved]

NARRATIVE: CASE EVENT DATE: 20210125
